FAERS Safety Report 5781556-3 (Version None)
Quarter: 2008Q2

REPORT INFORMATION
  Report Type: 
  Country: None (occurrence: None)
  Receive Date: 20080619
  Receipt Date: 20080611
  Transmission Date: 20081010
  Serious: Yes (Hospitalization)
  Sender: FDA-Public Use
  Company Number: 238264K07USA

PATIENT
  Age: 43 Year
  Sex: Female
  Weight: 68.0396 kg

DRUGS (2)
  1. REBIF [Suspect]
     Indication: MULTIPLE SCLEROSIS
     Dosage: 44 MCG, 3 IN 1 WEEKS, SUBCUTANEOUS
     Route: 058
     Dates: start: 20030122
  2. PROZAC [Concomitant]

REACTIONS (5)
  - FEELING HOT [None]
  - FLUSHING [None]
  - KIDNEY INFECTION [None]
  - PAIN [None]
  - SLIPPING RIB SYNDROME [None]
